FAERS Safety Report 23956350 (Version 2)
Quarter: 2024Q2

REPORT INFORMATION
  Report Type: Other
  Country: JP (occurrence: JP)
  Receive Date: 20240610
  Receipt Date: 20240613
  Transmission Date: 20240716
  Serious: Yes (Hospitalization, Other)
  Sender: FDA-Public Use
  Company Number: JP-DEXPHARM-2024-1676

PATIENT
  Age: 64 Year
  Sex: Male

DRUGS (5)
  1. LANSOPRAZOLE [Suspect]
     Active Substance: LANSOPRAZOLE
     Indication: Peptic ulcer
     Dosage: LANSOPRAZOLE 15 MG/DAY
  2. METHOTREXATE [Suspect]
     Active Substance: METHOTREXATE
     Dosage: 4 MG/WEEK
  3. Potassium-competitive acid blocker (P-CAB) [Concomitant]
     Indication: Haemostasis
  4. H2 blocker [Concomitant]
  5. Mucoprotectants [Concomitant]

REACTIONS (6)
  - Gastric polyps [Unknown]
  - Faeces discoloured [Unknown]
  - Anaemia [Unknown]
  - Gastric haemorrhage [Unknown]
  - Gastrointestinal disorder [Unknown]
  - Hepatic fibrosis [Unknown]
